FAERS Safety Report 6209534-0 (Version None)
Quarter: 2009Q2

REPORT INFORMATION
  Report Type: 
  Country: None (occurrence: None)
  Receive Date: 20090601
  Receipt Date: 20090525
  Transmission Date: 20091009
  Serious: Yes (Hospitalization, Other)
  Sender: FDA-Public Use
  Company Number: US-TEVA-196197USA

PATIENT
  Age: 56 Year
  Sex: Female

DRUGS (5)
  1. AMLODIPINE BESYLATE,2.5 MG (BASE) + 5 MG (BASE) + 10 MG (BASE) TABLETS [Suspect]
  2. ATORVASTATIN CALCIUM [Suspect]
  3. ISRADIPINE [Suspect]
  4. NISOLDIPINE [Suspect]
  5. ANGIOTENSIN II ANTAGONISTS [Suspect]

REACTIONS (1)
  - SMALL BOWEL ANGIOEDEMA [None]
